FAERS Safety Report 19047356 (Version 11)
Quarter: 2022Q1

REPORT INFORMATION
  Report Type: Report from Study
  Country: CA (occurrence: CA)
  Receive Date: 20210323
  Receipt Date: 20220325
  Transmission Date: 20220423
  Serious: Yes (Hospitalization, Other)
  Sender: FDA-Public Use
  Company Number: CA-OTSUKA-2021_002344

PATIENT
  Age: 80 Year
  Sex: Male

DRUGS (2)
  1. CEDAZURIDINE\DECITABINE [Suspect]
     Active Substance: CEDAZURIDINE\DECITABINE
     Indication: Myelodysplastic syndrome
     Dosage: (35 MG DECITABINE AND 100 MG CEDAZURIDINE) , UNK
     Route: 065
     Dates: start: 20201228
  2. CEDAZURIDINE\DECITABINE [Suspect]
     Active Substance: CEDAZURIDINE\DECITABINE
     Indication: Chronic myelomonocytic leukaemia
     Dosage: QD 1-3 DAYS EVERY 28 DAY CYCLE
     Route: 065
     Dates: start: 20210610, end: 20220314

REACTIONS (23)
  - Skin discolouration [Unknown]
  - Red blood cell count abnormal [Recovering/Resolving]
  - Blood product transfusion dependent [Unknown]
  - Acute leukaemia [Unknown]
  - Endocarditis [Unknown]
  - Fatigue [Unknown]
  - White blood cell count decreased [Recovering/Resolving]
  - Platelet count decreased [Unknown]
  - Sepsis [Unknown]
  - Pneumonia [Recovered/Resolved]
  - Haemoglobin decreased [Unknown]
  - White blood cell count increased [Unknown]
  - Biopsy [Unknown]
  - General physical health deterioration [Unknown]
  - Eastern Cooperative Oncology Group performance status worsened [Unknown]
  - Initial insomnia [Unknown]
  - Oral mucosal exfoliation [Unknown]
  - Back pain [Unknown]
  - Gait disturbance [Unknown]
  - Oral candidiasis [Unknown]
  - Headache [Unknown]
  - Product storage error [Unknown]
  - Product use issue [Unknown]

NARRATIVE: CASE EVENT DATE: 20210601
